FAERS Safety Report 13698964 (Version 1)
Quarter: 2017Q2

REPORT INFORMATION
  Report Type: Other
  Country: SE (occurrence: SE)
  Receive Date: 20170628
  Receipt Date: 20170628
  Transmission Date: 20170830
  Serious: Yes (Hospitalization)
  Sender: FDA-Public Use
  Company Number: SE-GE HEALTHCARE LIFE SCIENCES-2017CSU001796

PATIENT

DRUGS (3)
  1. OMNIPAQUE [Suspect]
     Active Substance: IOHEXOL
     Indication: PRODUCT USED FOR UNKNOWN INDICATION
     Dosage: 94 ML, SINGLE
     Route: 042
     Dates: start: 20170401, end: 20170401
  2. OMNIPAQUE [Suspect]
     Active Substance: IOHEXOL
     Dosage: 350 MGI/ML 94 ML
     Route: 042
     Dates: start: 20170401
  3. OMNIPAQUE [Suspect]
     Active Substance: IOHEXOL
     Indication: PRODUCT USED FOR UNKNOWN INDICATION
     Dosage: 25 ML, SINGLE
     Route: 048
     Dates: start: 20170401, end: 20170401

REACTIONS (3)
  - Burning sensation [Unknown]
  - Syncope [Unknown]
  - Dyspnoea [Unknown]

NARRATIVE: CASE EVENT DATE: 20170401
